FAERS Safety Report 13757665 (Version 3)
Quarter: 2017Q3

REPORT INFORMATION
  Report Type: Spontaneous
  Country: US (occurrence: US)
  Receive Date: 20170717
  Receipt Date: 20170927
  Transmission Date: 20171127
  Serious: No
  Sender: FDA-Public Use
  Company Number: US-009507513-1707USA003216

PATIENT
  Age: 24 Year
  Sex: Female
  Weight: 94.79 kg

DRUGS (1)
  1. NEXPLANON [Suspect]
     Active Substance: ETONOGESTREL
     Dosage: 1 ROD PER 3 YEARS
     Route: 059
     Dates: start: 2016, end: 20170713

REACTIONS (4)
  - Device kink [Recovered/Resolved]
  - Pain in extremity [Unknown]
  - Device expulsion [Recovered/Resolved]
  - Device breakage [Recovered/Resolved]

NARRATIVE: CASE EVENT DATE: 2016
